FAERS Safety Report 14376935 (Version 2)
Quarter: 2018Q1

REPORT INFORMATION
  Report Type: Spontaneous
  Country: US (occurrence: US)
  Receive Date: 20180111
  Receipt Date: 20180111
  Transmission Date: 20180509
  Serious: No
  Sender: FDA-Public Use
  Company Number: US-DRREDDYS-USA/USA/17/0094415

PATIENT
  Age: 65 Year
  Sex: Male
  Weight: 77.3 kg

DRUGS (2)
  1. NAPROXEN. [Concomitant]
     Active Substance: NAPROXEN
     Indication: PRODUCT USED FOR UNKNOWN INDICATION
     Route: 065
  2. NICOTINE. [Suspect]
     Active Substance: NICOTINE
     Indication: SMOKING CESSATION THERAPY
     Route: 062
     Dates: start: 20171022

REACTIONS (5)
  - Product quality issue [Unknown]
  - Somnolence [Unknown]
  - Incorrect dose administered [Unknown]
  - Nicotine dependence [Unknown]
  - Fatigue [Unknown]
